FAERS Safety Report 9959006 (Version 1)
Quarter: 2014Q1

REPORT INFORMATION
  Report Type: Spontaneous
  Country: US (occurrence: None)
  Receive Date: 20140227
  Receipt Date: 20140227
  Transmission Date: 20141002
  Serious: Yes (Life-Threatening, Other)
  Sender: FDA-Public Use
  Company Number: 001673582A

PATIENT
  Age: 46 Year
  Sex: Female

DRUGS (1)
  1. MEANINFUL BEAUTY ANTIOXIDANT DAY CREME WITH SPF 20 [Suspect]
     Dosage: ONCE DAILY DERMAL
     Dates: start: 20140130

REACTIONS (3)
  - Eye swelling [None]
  - Pharyngeal oedema [None]
  - Nasal congestion [None]
